FAERS Safety Report 7815088-5 (Version None)
Quarter: 2011Q4

REPORT INFORMATION
  Report Type: 
  Country: None (occurrence: None)
  Receive Date: 20111014
  Receipt Date: 20111014
  Transmission Date: 20120403
  Serious: Yes (Life-Threatening, Hospitalization, Disabling, Congenital Anomaly, Other)
  Sender: FDA-Public Use
  Company Number: None

PATIENT
  Age: 35 Year
  Sex: Female
  Weight: 68.038 kg

DRUGS (1)
  1. SERTRALINE HYDROCHLORIDE [Suspect]
     Indication: DEPRESSION
     Dosage: 150MGS
     Route: 048
     Dates: start: 20060506, end: 20100131

REACTIONS (7)
  - ATRIAL SEPTAL DEFECT ACQUIRED [None]
  - MIGRAINE [None]
  - INTRACARDIAC THROMBUS [None]
  - CEREBROVASCULAR ACCIDENT [None]
  - FIBROMYALGIA [None]
  - FATIGUE [None]
  - IMPAIRED WORK ABILITY [None]
